FAERS Safety Report 5192955-5 (Version None)
Quarter: 2006Q4

REPORT INFORMATION
  Report Type: 
  Country: None (occurrence: None)
  Receive Date: 20061228
  Receipt Date: 20060320
  Transmission Date: 20070319
  Serious: Yes (Hospitalization)
  Sender: FDA-Public Use
  Company Number: US-GLAXOSMITHKLINE-A0598231A

PATIENT
  Age: 74 Year
  Sex: Male

DRUGS (17)
  1. FLONASE [Suspect]
     Indication: SINUS DISORDER
     Dosage: 2SPR AT NIGHT
     Route: 045
  2. PREDNISONE TAB [Concomitant]
  3. AFRIN [Concomitant]
  4. MIRAPEX [Concomitant]
  5. LASIX [Concomitant]
  6. VASOTEC [Concomitant]
  7. ASPIRIN [Concomitant]
  8. AMIODARONE HCL [Concomitant]
  9. ZANTAC [Concomitant]
  10. REGLAN [Concomitant]
  11. SYNTHROID [Concomitant]
  12. MECLIZINE [Concomitant]
  13. LIPITOR [Concomitant]
  14. LORAZEPAM [Concomitant]
  15. ALBUTEROL [Concomitant]
  16. FLOVENT [Concomitant]
  17. ATROVENT [Concomitant]

REACTIONS (1)
  - DYSPNOEA [None]
